FAERS Safety Report 5856238-X (Version None)
Quarter: 2008Q3

REPORT INFORMATION
  Report Type: 
  Country: None (occurrence: None)
  Receive Date: 20080825
  Receipt Date: 20080821
  Transmission Date: 20090109
  Serious: Yes (Hospitalization)
  Sender: FDA-Public Use
  Company Number: A0744148A

PATIENT
  Age: 61 Year
  Sex: Male
  Weight: 72.7 kg

DRUGS (4)
  1. AVANDIA [Suspect]
     Indication: DIABETES MELLITUS
     Dosage: 4MG TWICE PER DAY
     Route: 048
     Dates: start: 20050929
  2. AVANDAMET [Concomitant]
     Dosage: 1TAB TWICE PER DAY
     Route: 048
     Dates: start: 20070815, end: 20071201
  3. HUMALOG [Concomitant]
     Dates: start: 20020101
  4. HUMULIN R [Concomitant]
     Dates: start: 20070501, end: 20070801

REACTIONS (1)
  - MYOCARDIAL INFARCTION [None]
